FAERS Safety Report 5705769-1 (Version None)
Quarter: 2008Q2

REPORT INFORMATION
  Report Type: 
  Country: None (occurrence: None)
  Receive Date: 20080415
  Receipt Date: 20080408
  Transmission Date: 20081010
  Serious: Yes (Other)
  Sender: FDA-Public Use
  Company Number: JP-ASTRAZENECA-2008AP02192

PATIENT
  Age: 60 Year
  Sex: Female
  Weight: 43 kg

DRUGS (11)
  1. IRESSA [Suspect]
     Indication: LUNG NEOPLASM MALIGNANT
     Route: 048
     Dates: start: 20071205, end: 20080228
  2. HALFDIGOXIN [Concomitant]
     Indication: TACHYARRHYTHMIA
     Route: 048
     Dates: start: 20070801
  3. SELBEX [Concomitant]
     Indication: GASTRITIS
     Route: 048
     Dates: start: 20070809
  4. UNKNOWNDRUG [Concomitant]
     Indication: LUNG NEOPLASM MALIGNANT
     Route: 048
     Dates: start: 20070823
  5. ARTIST [Concomitant]
     Indication: HYPERTENSION
     Route: 048
     Dates: start: 20070928
  6. URSO 250 [Concomitant]
     Indication: HEPATITIS C
     Route: 048
     Dates: start: 20071205
  7. HIBON [Concomitant]
     Indication: RASH
     Route: 048
     Dates: start: 20080214, end: 20080327
  8. PYDOXAL [Concomitant]
     Indication: RASH
     Route: 048
     Dates: start: 20080214, end: 20080327
  9. MUCOSOLVAN [Concomitant]
     Route: 048
  10. MAGMITT [Concomitant]
     Dosage: UNKNOWN DOSE
     Route: 048
  11. RINDERON-DP [Concomitant]
     Dosage: UNKNOWN DOSE
     Route: 062

REACTIONS (2)
  - PARONYCHIA [None]
  - RASH [None]
